FAERS Safety Report 9143448 (Version 1)
Quarter: 2013Q1

REPORT INFORMATION
  Report Type: Spontaneous
  Country: US (occurrence: US)
  Receive Date: 20130306
  Receipt Date: 20130306
  Transmission Date: 20140127
  Serious: No
  Sender: FDA-Public Use
  Company Number: US-ENDO PHARMACEUTICALS INC.-OPER20120507

PATIENT
  Sex: Male

DRUGS (2)
  1. OPANA ER [Suspect]
     Indication: PAIN
     Dosage: 40 MG
     Route: 048
     Dates: start: 2007, end: 20120402
  2. OPANA ER [Suspect]
     Indication: INTERVERTEBRAL DISC DEGENERATION

REACTIONS (4)
  - Road traffic accident [Recovering/Resolving]
  - Rib fracture [Recovering/Resolving]
  - Compression fracture [Recovering/Resolving]
  - Spinal fracture [Recovering/Resolving]
